FAERS Safety Report 13195910 (Version 1)
Quarter: 2017Q1

REPORT INFORMATION
  Report Type: Report from Study
  Country: US (occurrence: US)
  Receive Date: 20170208
  Receipt Date: 20170208
  Transmission Date: 20170428
  Serious: No
  Sender: FDA-Public Use
  Company Number: PHEH2017US003476

PATIENT
  Age: 39 Year
  Sex: Female

DRUGS (1)
  1. TRILEPTAL [Suspect]
     Active Substance: OXCARBAZEPINE
     Indication: PRODUCT USED FOR UNKNOWN INDICATION
     Route: 065

REACTIONS (4)
  - Arthropod bite [Unknown]
  - Gait disturbance [Unknown]
  - Pain [Unknown]
  - Local swelling [Unknown]

NARRATIVE: CASE EVENT DATE: 20170128
